FAERS Safety Report 8397569-1 (Version None)
Quarter: 2012Q2

REPORT INFORMATION
  Report Type: 
  Country: None (occurrence: None)
  Receive Date: 20120529
  Receipt Date: 20120529
  Transmission Date: 20120825
  Serious: No
  Sender: FDA-Public Use
  Company Number: None

PATIENT
  Age: 4 Year
  Sex: Male
  Weight: 19.0511 kg

DRUGS (1)
  1. SINGULAIR [Suspect]
     Indication: ASTHMA PROPHYLAXIS
     Dosage: 4MG DAILY PO
     Route: 048
     Dates: start: 20090601, end: 20120524

REACTIONS (6)
  - AGGRESSION [None]
  - WITHDRAWAL SYNDROME [None]
  - EMOTIONAL DISORDER [None]
  - FEAR [None]
  - SLEEP TERROR [None]
  - ANGER [None]
